FAERS Safety Report 5017008-8 (Version None)
Quarter: 2006Q2

REPORT INFORMATION
  Report Type: 
  Country: None (occurrence: None)
  Receive Date: 20060526
  Receipt Date: 20060516
  Transmission Date: 20061013
  Serious: Yes (Other)
  Sender: FDA-Public Use
  Company Number: US200605000702

PATIENT
  Age: 54 Year
  Sex: Female
  Weight: 103.9 kg

DRUGS (11)
  1. XIGRIS [Suspect]
     Indication: SEPSIS
     Dosage: 24 UG, INTRAVENOUS
     Route: 042
     Dates: start: 20060501, end: 20060501
  2. ZOSYN [Concomitant]
  3. LIPITOR [Concomitant]
  4. LEVOPHED [Concomitant]
  5. HEPARIN SODIUM [Concomitant]
  6. LASIX [Concomitant]
  7. NEXIUM [Concomitant]
  8. GENTAMYCIN-MP (GENTAMICIN SULFATE) [Concomitant]
  9. HALDOL [Concomitant]
  10. VANCOCIN (VANCOMYCIN HYDROCHLORIDE) CAPSULE [Concomitant]
  11. VASOPRESSIN AND ANALOGUES [Concomitant]

REACTIONS (2)
  - BODY TEMPERATURE INCREASED [None]
  - PHARMACEUTICAL PRODUCT COMPLAINT [None]
